FAERS Safety Report 6431401-8 (Version None)
Quarter: 2009Q4

REPORT INFORMATION
  Report Type: 
  Country: None (occurrence: None)
  Receive Date: 20091105
  Receipt Date: 20091105
  Transmission Date: 20100525
  Serious: Yes (Life-Threatening, Disabling, Other)
  Sender: FDA-Public Use
  Company Number: None

PATIENT
  Age: 56 Year
  Sex: Male
  Weight: 68.0396 kg

DRUGS (2)
  1. RISPERIDONE [Suspect]
     Indication: SEDATION
     Dates: start: 20090701, end: 20090820
  2. RISPERIDONE [Suspect]
     Indication: SEDATION
     Dates: start: 20090725, end: 20090820

REACTIONS (1)
  - UNEVALUABLE EVENT [None]
